FAERS Safety Report 6006227-X (Version None)
Quarter: 2008Q4

REPORT INFORMATION
  Report Type: 
  Country: None (occurrence: None)
  Receive Date: 20081217
  Receipt Date: 20081208
  Transmission Date: 20090506
  Serious: Yes (Life-Threatening, Hospitalization)
  Sender: FDA-Public Use
  Company Number: US-ELI_LILLY_AND_COMPANY-US200812002025

PATIENT
  Sex: Female

DRUGS (12)
  1. BYETTA [Suspect]
     Dosage: UNK, UNKNOWN
     Route: 058
     Dates: end: 20081101
  2. NOVOLOG [Concomitant]
     Dosage: 5 U, 3/D
     Route: 065
  3. LANTUS [Concomitant]
     Dosage: 22 U, EACH MORNING
     Route: 065
  4. NEPHRO-VITE RX [Concomitant]
     Dosage: UNK, UNKNOWN
     Route: 065
  5. NYSTATIN [Concomitant]
     Dosage: UNK, UNKNOWN
     Route: 065
  6. ASPIRIN [Concomitant]
     Dosage: UNK, UNKNOWN
     Route: 065
  7. CYANOCOBALAMIN [Concomitant]
     Dosage: UNK, UNKNOWN
     Route: 065
  8. RANITIDINE [Concomitant]
     Dosage: UNK, UNKNOWN
     Route: 065
  9. PRAVASTATIN [Concomitant]
     Dosage: UNK, UNKNOWN
     Route: 065
  10. METOPROLOL TARTRATE [Concomitant]
     Dosage: UNK, UNKNOWN
     Route: 065
  11. NIACIN [Concomitant]
     Dosage: UNK, UNKNOWN
     Route: 065
  12. ZOFRAN [Concomitant]

REACTIONS (6)
  - DEHYDRATION [None]
  - DIARRHOEA [None]
  - EPISTAXIS [None]
  - METABOLIC ACIDOSIS [None]
  - PANCREATITIS [None]
  - RENAL FAILURE [None]
